FAERS Safety Report 11811691 (Version 1)
Quarter: 2015Q4

REPORT INFORMATION
  Report Type: Spontaneous
  Country: GR (occurrence: GR)
  Receive Date: 20151208
  Receipt Date: 20151208
  Transmission Date: 20160305
  Serious: Yes (Death, Other)
  Sender: FDA-Public Use
  Company Number: GR-ACORDA-ACO_119725_2015

PATIENT
  Age: 25 Year
  Sex: Male

DRUGS (1)
  1. QUTENZA [Suspect]
     Active Substance: CAPSAICIN
     Indication: NEURALGIA
     Dosage: UNK, UNKNOWN FREQ. 2 PATCHES
     Route: 003
     Dates: start: 20151121, end: 20151121

REACTIONS (1)
  - Sarcoma [Fatal]

NARRATIVE: CASE EVENT DATE: 20151122
